FAERS Safety Report 15317920 (Version 1)
Quarter: 2018Q3

REPORT INFORMATION
  Report Type: Spontaneous
  Country: US (occurrence: US)
  Receive Date: 20180816
  Receipt Date: 20180816
  Transmission Date: 20181010
  Serious: Yes (Death)
  Sender: FDA-Public Use
  Company Number: None

PATIENT
  Age: 64 Year
  Sex: Male

DRUGS (1)
  1. WARFARIN [Suspect]
     Active Substance: WARFARIN

REACTIONS (4)
  - Atrial fibrillation [None]
  - Pneumonia [None]
  - Cerebral haemorrhage [None]
  - Pulmonary embolism [None]
